FAERS Safety Report 21440949 (Version 1)
Quarter: 2022Q4

REPORT INFORMATION
  Report Type: Spontaneous
  Country: KW (occurrence: KW)
  Receive Date: 20221011
  Receipt Date: 20221011
  Transmission Date: 20230113
  Serious: Yes (Hospitalization)
  Sender: FDA-Public Use
  Company Number: KW-LUNDBECK-DKLU3052068

PATIENT
  Sex: Male

DRUGS (5)
  1. ESCITALOPRAM OXALATE [Suspect]
     Active Substance: ESCITALOPRAM OXALATE
     Indication: Major depression
  2. ARIPIPRAZOLE [Suspect]
     Active Substance: ARIPIPRAZOLE
     Indication: Major depression
  3. CLONAZEPAM [Suspect]
     Active Substance: CLONAZEPAM
     Indication: Major depression
     Dosage: 0.5 MG
  4. QUETIAPINE [Suspect]
     Active Substance: QUETIAPINE
     Indication: Major depression
     Dosage: 600 MG, QD
  5. VALPROATE [Concomitant]
     Active Substance: VALPROIC ACID
     Indication: Product used for unknown indication
     Dosage: 1500 MG, QD

REACTIONS (3)
  - Torticollis [Unknown]
  - Akathisia [Unknown]
  - Drug ineffective [Unknown]
